FAERS Safety Report 8017900 (Version 4)
Quarter: 2013Q3

REPORT INFORMATION
  Report Type: Spontaneous
  Country: US (occurrence: US)
  Receive Date: 20110701
  Receipt Date: 20130711
  Transmission Date: 20140515
  Serious: Yes (Hospitalization, Congenital Anomaly)
  Sender: FDA-Public Use
  Company Number: US-BIOGENIDEC-2011BI022977

PATIENT
  Age: 0 None
  Sex: Female
  Weight: 2 kg

DRUGS (2)
  1. AVONEX [Suspect]
     Indication: MATERNAL EXPOSURE TIMING UNSPECIFIED
     Route: 064
     Dates: start: 20100301
  2. AVONEX [Suspect]
     Indication: MATERNAL EXPOSURE TIMING UNSPECIFIED
     Route: 064
     Dates: start: 20100317, end: 20101123

REACTIONS (7)
  - Single umbilical artery [Recovered/Resolved]
  - Temperature regulation disorder [Recovered/Resolved]
  - Oxygen saturation decreased [Recovered/Resolved]
  - Blood glucose fluctuation [Recovered/Resolved]
  - Low birth weight baby [Recovered/Resolved]
  - Weight decrease neonatal [Recovered/Resolved]
  - Underweight [Unknown]
